FAERS Safety Report 9690230 (Version 1)
Quarter: 2013Q4

REPORT INFORMATION
  Report Type: Spontaneous
  Country: DE (occurrence: DE)
  Receive Date: 20131115
  Receipt Date: 20131115
  Transmission Date: 20140711
  Serious: Yes (Hospitalization)
  Sender: FDA-Public Use
  Company Number: DE-JNJFOC-20131101745

PATIENT
  Age: 67 Year
  Sex: Female
  Weight: 76 kg

DRUGS (9)
  1. RISPERDAL [Suspect]
     Indication: PRODUCT USED FOR UNKNOWN INDICATION
     Route: 048
  2. QUILONORM RETARD [Suspect]
     Indication: PRODUCT USED FOR UNKNOWN INDICATION
     Route: 048
     Dates: start: 20130410, end: 20130421
  3. NORTRILEN [Suspect]
     Indication: PRODUCT USED FOR UNKNOWN INDICATION
     Route: 048
  4. NORTRILEN [Suspect]
     Indication: PRODUCT USED FOR UNKNOWN INDICATION
     Dosage: AT ADMISSION
     Route: 048
  5. VALPROIC ACID [Suspect]
     Indication: PRODUCT USED FOR UNKNOWN INDICATION
     Route: 065
  6. ATOSIL [Concomitant]
     Route: 048
     Dates: start: 2012, end: 20130510
  7. TAVOR [Concomitant]
     Route: 048
     Dates: start: 20130410, end: 20130501
  8. LAMOTRIGIN [Concomitant]
     Route: 048
  9. LAMOTRIGIN [Concomitant]
     Route: 048

REACTIONS (6)
  - Suicidal ideation [Unknown]
  - Tremor [Recovered/Resolved]
  - Depression [Unknown]
  - Delusion [Unknown]
  - Mental disorder [Unknown]
  - Boredom [Unknown]
